FAERS Safety Report 15197148 (Version 1)
Quarter: 2018Q3

REPORT INFORMATION
  Report Type: Spontaneous
  Country: IT (occurrence: IT)
  Receive Date: 20180725
  Receipt Date: 20180725
  Transmission Date: 20181010
  Serious: Yes (Other)
  Sender: FDA-Public Use
  Company Number: IT-TEVA-2018-IT-930143

PATIENT
  Age: 26 Year
  Sex: Male
  Weight: 112 kg

DRUGS (7)
  1. RISPERDAL [Concomitant]
     Active Substance: RISPERIDONE
     Route: 065
  2. TOPAMAX [Concomitant]
     Active Substance: TOPIRAMATE
     Route: 065
  3. KEPPRA 500 MG FILM?COATED TABLETS [Concomitant]
  4. TEGRETOL 400 MG COMPRESSE [Concomitant]
     Route: 065
  5. KEPPRA 1000 MG FILM?COATED TABLETS [Concomitant]
  6. PANTOPRAZOLE [Suspect]
     Active Substance: PANTOPRAZOLE
     Indication: GASTRITIS
     Dosage: 40 MILLIGRAM DAILY;
     Route: 065
  7. DEPAKIN [Concomitant]
     Active Substance: VALPROATE SODIUM
     Route: 065

REACTIONS (1)
  - Epilepsy [Unknown]

NARRATIVE: CASE EVENT DATE: 20180416
